FAERS Safety Report 5305834-7 (Version None)
Quarter: 2007Q2

REPORT INFORMATION
  Report Type: 
  Country: None (occurrence: None)
  Receive Date: 20070420
  Receipt Date: 20070420
  Transmission Date: 20071010
  Serious: Yes (Death, Hospitalization)
  Sender: FDA-Public Use
  Company Number: None

PATIENT
  Sex: Male
  Weight: 69 kg

DRUGS (5)
  1. CISPLATIN [Suspect]
     Indication: NEOPLASM MALIGNANT
     Dosage: 39 MG 96 HRS. IV
     Route: 042
     Dates: start: 20070219, end: 20070223
  2. CISPLATIN [Suspect]
     Indication: NEOPLASM MALIGNANT
     Dosage: 38 MG 96 HRS. IV
     Route: 042
     Dates: start: 20070312, end: 20070316
  3. IRESSA [Suspect]
     Indication: NEOPLASM MALIGNANT
     Dosage: 250 MG DAILY PO
     Route: 048
     Dates: start: 20070219, end: 20070328
  4. FLUOROURACIL [Suspect]
     Indication: NEOPLASM MALIGNANT
     Dosage: 1930 MG 96 HRS. IV
     Route: 042
     Dates: start: 20070223, end: 20070312
  5. FLUOROURACIL [Suspect]
     Indication: NEOPLASM MALIGNANT
     Dosage: 1900 MG 96 HRS. IV
     Route: 042
     Dates: start: 20070312, end: 20070316

REACTIONS (7)
  - DIARRHOEA [None]
  - FEBRILE NEUTROPENIA [None]
  - HYPOXIA [None]
  - LUNG DISORDER [None]
  - PNEUMONIA ASPIRATION [None]
  - RENAL IMPAIRMENT [None]
  - RESPIRATORY DISTRESS [None]
